FAERS Safety Report 5910197-X (Version None)
Quarter: 2008Q4

REPORT INFORMATION
  Report Type: 
  Country: None (occurrence: None)
  Receive Date: 20081007
  Receipt Date: 20071127
  Transmission Date: 20090506
  Serious: No
  Sender: FDA-Public Use
  Company Number: US-ASTRAZENECA-2007UW23184

PATIENT
  Age: 995 Month
  Sex: Female
  Weight: 70.3 kg

DRUGS (4)
  1. ARIMIDEX [Suspect]
     Indication: BREAST CANCER FEMALE
     Route: 048
     Dates: start: 20060711
  2. LIPITOR [Concomitant]
     Indication: DYSLIPIDAEMIA
     Route: 048
  3. VITAMINS [Concomitant]
  4. GLUCOSAMINE [Concomitant]
     Indication: ARTHRITIS

REACTIONS (2)
  - ILL-DEFINED DISORDER [None]
  - MUSCULOSKELETAL STIFFNESS [None]
